FAERS Safety Report 22165319 (Version 1)
Quarter: 2023Q2

REPORT INFORMATION
  Report Type: Report from Study
  Country: ZA (occurrence: ZA)
  Receive Date: 20230403
  Receipt Date: 20230403
  Transmission Date: 20230721
  Serious: Yes (Other)
  Sender: FDA-Public Use
  Company Number: ZA-SA-SAC20230330000716

PATIENT
  Age: 51 Year
  Sex: Male

DRUGS (7)
  1. INSULIN GLARGINE [Suspect]
     Active Substance: INSULIN GLARGINE
     Indication: Diabetes mellitus
     Dosage: BB-20 UNITS
     Route: 058
     Dates: start: 20210901
  2. GLUCOPHAGE [Concomitant]
     Active Substance: METFORMIN HYDROCHLORIDE
     Dosage: AL-500 MG | AS-500 MG | AB-500 MG
     Dates: start: 20211118
  3. ECOTRIN [Concomitant]
     Active Substance: ASPIRIN
     Dosage: AB81MG
     Dates: start: 20180101
  4. GLICLAZIDE [Concomitant]
     Active Substance: GLICLAZIDE
     Dosage: AS-60 MG | AL-60 MG | AB-60 MG
     Dates: start: 20180101
  5. CO IRBEWIN [Concomitant]
     Dosage: AB-300 MG
     Dates: start: 20180101
  6. ATORVASTATIN [Concomitant]
     Active Substance: ATORVASTATIN
     Dosage: BT-20 MG
     Dates: start: 20180101
  7. AMLODIPINE BESYLATE [Concomitant]
     Active Substance: AMLODIPINE BESYLATE
     Dosage: AB-10 MG
     Dates: start: 20180101

REACTIONS (2)
  - Erectile dysfunction [Not Recovered/Not Resolved]
  - Constipation [Not Recovered/Not Resolved]

NARRATIVE: CASE EVENT DATE: 20230102
